FAERS Safety Report 24638060 (Version 1)
Quarter: 2024Q4

REPORT INFORMATION
  Report Type: Spontaneous
  Country: CA (occurrence: CA)
  Receive Date: 20241119
  Receipt Date: 20241119
  Transmission Date: 20250114
  Serious: Yes (Other)
  Sender: TEVA
  Company Number: CA-TEVA-VS-3263725

PATIENT
  Age: 62 Year
  Sex: Female

DRUGS (8)
  1. METHOTREXATE [Suspect]
     Active Substance: METHOTREXATE
     Indication: Product used for unknown indication
     Dosage: DOSE FORM: NOT SPECIFIED
     Route: 065
  2. YUFLYMA [Suspect]
     Active Substance: ADALIMUMAB-AATY
     Indication: Rheumatoid arthritis
     Dosage: YUFLYMA PRE-FILLED PEN
     Route: 058
  3. YUFLYMA [Suspect]
     Active Substance: ADALIMUMAB-AATY
     Indication: Rheumatoid arthritis
     Dosage: YUFLYMA PRE-FILLED PEN
     Route: 058
  4. YUFLYMA [Suspect]
     Active Substance: ADALIMUMAB-AATY
     Indication: Rheumatoid arthritis
     Dosage: YUFLYMA PRE-FILLED PEN
     Route: 058
  5. YUFLYMA [Suspect]
     Active Substance: ADALIMUMAB-AATY
     Indication: Rheumatoid arthritis
     Dosage: YUFLYMA PRE-FILLED PEN, DOSE FORM: SOLUTION SUBCUTANEOUS
     Route: 058
  6. DOMPERIDONE [Concomitant]
     Active Substance: DOMPERIDONE
     Indication: Gastrointestinal disorder
     Route: 065
  7. ROSUVASTATIN [Concomitant]
     Active Substance: ROSUVASTATIN
     Indication: Gastrointestinal disorder
     Dosage: DOSE FORM: NOT SPECIFIED
     Route: 058
  8. PANTOPRAZOLE [Concomitant]
     Active Substance: PANTOPRAZOLE
     Indication: Gastrointestinal disorder
     Dosage: DOSE FORM: NOT SPECIFIED
     Route: 065

REACTIONS (11)
  - Hypertension [Not Recovered/Not Resolved]
  - Headache [Not Recovered/Not Resolved]
  - Blood pressure increased [Not Recovered/Not Resolved]
  - Intentional dose omission [Not Recovered/Not Resolved]
  - Illness [Not Recovered/Not Resolved]
  - Discomfort [Not Recovered/Not Resolved]
  - Influenza like illness [Not Recovered/Not Resolved]
  - Nausea [Not Recovered/Not Resolved]
  - Panic attack [Not Recovered/Not Resolved]
  - Head discomfort [Not Recovered/Not Resolved]
  - Neoplasm malignant [Not Recovered/Not Resolved]
